FAERS Safety Report 6152883-5 (Version None)
Quarter: 2009Q2

REPORT INFORMATION
  Report Type: 
  Country: None (occurrence: None)
  Receive Date: 20090413
  Receipt Date: 20090406
  Transmission Date: 20091009
  Serious: Yes (Other)
  Sender: FDA-Public Use
  Company Number: PHHY2009FR11533

PATIENT
  Sex: Female

DRUGS (5)
  1. ACLASTA [Suspect]
     Indication: OSTEOPOROSIS
     Dosage: UNK
     Dates: start: 20080801
  2. COZAAR [Concomitant]
     Indication: HYPERTENSION
     Dosage: 50 MG/DAY
  3. LASIX [Concomitant]
     Indication: HYPERTENSION
     Dosage: 20 MG, BID
  4. EZETROL [Concomitant]
     Indication: DYSLIPIDAEMIA
     Dosage: 20 MG DAILY
  5. COUMADIN [Concomitant]

REACTIONS (3)
  - INJECTION SITE PAIN [None]
  - LOSS OF CONSCIOUSNESS [None]
  - SYNCOPE [None]
